FAERS Safety Report 4558903-3 (Version None)
Quarter: 2005Q1

REPORT INFORMATION
  Report Type: 
  Country: None (occurrence: None)
  Receive Date: 20050121
  Receipt Date: 20050121
  Transmission Date: 20050727
  Serious: Yes (Hospitalization)
  Sender: FDA-Public Use
  Company Number: None

PATIENT
  Age: 54 Year
  Sex: Male
  Weight: 109.3169 kg

DRUGS (2)
  1. FENTANYL [Suspect]
     Indication: PAIN
     Dosage: 50 MCG Q72 HOURS  TRANSDERMAL
     Route: 062
     Dates: start: 20040607, end: 20050113
  2. TRAMADOL    50 MG [Suspect]
     Indication: PAIN
     Dosage: 50 MG  QD HOURS  PRN ORAL
     Route: 048
     Dates: start: 20041217, end: 20050113

REACTIONS (3)
  - MUSCLE TWITCHING [None]
  - MYOCLONUS [None]
  - RESTLESS LEGS SYNDROME [None]
